FAERS Safety Report 10854446 (Version 1)
Quarter: 2015Q1

REPORT INFORMATION
  Report Type: Spontaneous
  Country: US (occurrence: None)
  Receive Date: 20150218
  Receipt Date: 20150218
  Transmission Date: 20150721
  Serious: Yes (Other)
  Sender: FDA-Public Use
  Company Number: None

PATIENT
  Age: 26 Year
  Sex: Female

DRUGS (2)
  1. LUPRON DEPOT [Suspect]
     Active Substance: LEUPROLIDE ACETATE
     Dosage: 1, MONTHLY, INTO THE MUSCLE
  2. LUPRON DEPOT [Suspect]
     Active Substance: LEUPROLIDE ACETATE
     Indication: ENDOMETRIOSIS
     Dosage: 1, MONTHLY, INTO THE MUSCLE

REACTIONS (10)
  - Migraine [None]
  - Osteoporosis [None]
  - Tooth loss [None]
  - Blood pressure abnormal [None]
  - Fatigue [None]
  - Bone pain [None]
  - Amnesia [None]
  - Spinal fracture [None]
  - Tooth fracture [None]
  - Arthralgia [None]
